FAERS Safety Report 10727698 (Version 2)
Quarter: 2016Q1

REPORT INFORMATION
  Report Type: Spontaneous
  Country: US (occurrence: US)
  Receive Date: 20150121
  Receipt Date: 20160309
  Transmission Date: 20160525
  Serious: No
  Sender: FDA-Public Use
  Company Number: US-EISAI MEDICAL RESEARCH-EC-2015-003041

PATIENT
  Sex: Female
  Weight: 81.63 kg

DRUGS (34)
  1. LYRICA [Suspect]
     Active Substance: PREGABALIN
     Indication: HERPES ZOSTER
     Dosage: UNKNOWN
     Route: 065
  2. AMLODIPINE [Concomitant]
     Active Substance: AMLODIPINE BESYLATE
  3. METOPROLOL. [Concomitant]
     Active Substance: METOPROLOL
  4. METFORMIN [Concomitant]
     Active Substance: METFORMIN HYDROCHLORIDE
     Indication: DIABETES MELLITUS
  5. BENAZEPRIL HCL [Concomitant]
     Active Substance: BENAZEPRIL HYDROCHLORIDE
  6. PROBIOTIC [Concomitant]
     Active Substance: PROBIOTICS NOS
  7. ZOCOR [Concomitant]
     Active Substance: SIMVASTATIN
     Dates: start: 20151117
  8. ARICEPT [Suspect]
     Active Substance: DONEPEZIL HYDROCHLORIDE
     Indication: PRODUCT USED FOR UNKNOWN INDICATION
     Route: 048
     Dates: start: 20150701
  9. LYRICA [Suspect]
     Active Substance: PREGABALIN
     Indication: FIBROMYALGIA
     Route: 065
  10. CRANBERRY. [Concomitant]
     Active Substance: CRANBERRY
  11. SYSTANE (HYPROMELLOSE 2910 (4000 MPA.S)) [Concomitant]
     Active Substance: HYPROMELLOSE 2910 (4000 MPA.S)
     Indication: DRY EYE
  12. PROBIOTICS [Concomitant]
     Active Substance: PROBIOTICS NOS
  13. METAMUCIL [Concomitant]
     Active Substance: PLANTAGO SEED
  14. VITAMIN D3 [Concomitant]
     Active Substance: CHOLECALCIFEROL
  15. METFORMIN HCL [Concomitant]
     Active Substance: METFORMIN HYDROCHLORIDE
  16. OXYBUTYNIN [Concomitant]
     Active Substance: OXYBUTYNIN
  17. CLINDAMYCIN PHOSPHATE. [Concomitant]
     Active Substance: CLINDAMYCIN PHOSPHATE
  18. CLINDAMYCIN PHOSPHATE AND BENZOYL PEROXIDE [Concomitant]
     Active Substance: BENZOYL PEROXIDE\CLINDAMYCIN PHOSPHATE
  19. LYRICA [Suspect]
     Active Substance: PREGABALIN
     Indication: DIABETIC NEUROPATHY
  20. ZOLPIDEM [Concomitant]
     Active Substance: ZOLPIDEM\ZOLPIDEM TARTRATE
  21. HYDROCODONE BITARTRATE AND ACETAMINOPHEN [Concomitant]
     Active Substance: ACETAMINOPHEN\HYDROCODONE BITARTRATE
  22. NORVASC [Concomitant]
     Active Substance: AMLODIPINE BESYLATE
  23. ZOLPIDEM TARTRATE. [Concomitant]
     Active Substance: ZOLPIDEM TARTRATE
  24. BENZOYL PEROXIDE. [Concomitant]
     Active Substance: BENZOYL PEROXIDE
  25. FLAXSEED [Concomitant]
     Active Substance: FLAX SEED
  26. METOPROLOL SUCCINATE. [Concomitant]
     Active Substance: METOPROLOL SUCCINATE
  27. PERCOCET [Concomitant]
     Active Substance: ACETAMINOPHEN\OXYCODONE HYDROCHLORIDE
  28. HYDROXYZINE HCL [Concomitant]
     Active Substance: HYDROXYZINE HYDROCHLORIDE
  29. ESTRACE [Concomitant]
     Active Substance: ESTRADIOL
  30. MYRBETRIQ [Concomitant]
     Active Substance: MIRABEGRON
  31. CYMBALTA [Concomitant]
     Active Substance: DULOXETINE HYDROCHLORIDE
  32. DIAZEPAM. [Concomitant]
     Active Substance: DIAZEPAM
  33. VITAMIN D [Concomitant]
     Active Substance: CHOLECALCIFEROL
  34. ONE TOUCH [Concomitant]
     Dates: start: 20150701

REACTIONS (1)
  - Visual acuity reduced [Not Recovered/Not Resolved]
